FAERS Safety Report 22589732 (Version 1)
Quarter: 2023Q2

REPORT INFORMATION
  Report Type: Other
  Country: CN (occurrence: CN)
  Receive Date: 20230612
  Receipt Date: 20230612
  Transmission Date: 20230722
  Serious: Yes (Hospitalization)
  Sender: FDA-Public Use
  Company Number: CN-ALVOGEN-2023091575

PATIENT
  Age: 46 Year
  Sex: Male

DRUGS (8)
  1. VORICONAZOLE [Suspect]
     Active Substance: VORICONAZOLE
     Indication: Aspergillus infection
     Dosage: 200 MG INTRAVENOUSLY EVERY 0.5 DAYS.
     Route: 040
     Dates: start: 20220211
  2. ACETYLCYSTEINE [Concomitant]
     Active Substance: ACETYLCYSTEINE
     Indication: Prophylaxis
  3. GLYCYRRHIZIN [Concomitant]
     Active Substance: GLYCYRRHIZIN
     Indication: Prophylaxis
  4. MOXIFLOXACIN [Concomitant]
     Active Substance: MOXIFLOXACIN
     Indication: Infection
     Dosage: INITIALLY FOR 3 DAYS IN OUTSIDE  HOSPITAL, BUT THE EFFECT WAS POOR.
  5. MOXIFLOXACIN [Concomitant]
     Active Substance: MOXIFLOXACIN
     Indication: Infection
     Dosage: RESTARTED ALONG WITH VORICONAZOLE AND PIPERACILLIN.
  6. PIPERACILLIN [Concomitant]
     Active Substance: PIPERACILLIN
     Indication: Infection
     Dosage: GIVEN AS PIPERACILLIN TAZOBACTAM SODIUM FOR 3 DAYS IN OUTSIDE HOSPITAL, BUT THE EFFECT WAS POOR.
  7. PIPERACILLIN [Concomitant]
     Active Substance: PIPERACILLIN
     Indication: Infection
     Dosage: RESTARTED ALONG WITH VORICONAZOLE AND MOXIFLOXACIN.
  8. Ambroxol  expectorant [Concomitant]
     Indication: Symptomatic treatment

REACTIONS (2)
  - Myocardial necrosis marker increased [Recovered/Resolved]
  - Myopathy [Recovering/Resolving]

NARRATIVE: CASE EVENT DATE: 20220201
